FAERS Safety Report 19186623 (Version 3)
Quarter: 2021Q2

REPORT INFORMATION
  Report Type: Report from Study
  Country: None (occurrence: US)
  Receive Date: 20210428
  Receipt Date: 20210527
  Transmission Date: 20210717
  Serious: Yes (Hospitalization, Other)
  Sender: FDA-Public Use
  Company Number: US-ABBVIE-21K-163-3875471-00

PATIENT
  Age: 42 Year
  Sex: Female
  Weight: 59.02 kg

DRUGS (2)
  1. HUMIRA [Suspect]
     Active Substance: ADALIMUMAB
     Indication: CROHN^S DISEASE
     Dosage: CITRATE FREE
     Route: 058
     Dates: start: 20210215, end: 20210215
  2. HUMIRA [Suspect]
     Active Substance: ADALIMUMAB
     Dosage: CITRATE FREE
     Route: 058
     Dates: start: 20210301, end: 20210410

REACTIONS (23)
  - Feeding disorder [Recovering/Resolving]
  - Inflammation [Recovered/Resolved]
  - Abdominal discomfort [Recovering/Resolving]
  - Pain in extremity [Recovering/Resolving]
  - Vomiting [Recovering/Resolving]
  - Intestinal stenosis [Unknown]
  - Intra-abdominal fluid collection [Recovering/Resolving]
  - Pollakiuria [Recovering/Resolving]
  - Heart rate decreased [Recovered/Resolved]
  - Frequent bowel movements [Recovering/Resolving]
  - Pericardial effusion [Recovered/Resolved]
  - Pain [Recovering/Resolving]
  - Gastric dilatation [Recovering/Resolving]
  - Sepsis [Recovering/Resolving]
  - White blood cell count increased [Recovering/Resolving]
  - Abdominal pain upper [Recovering/Resolving]
  - Pain [Recovered/Resolved]
  - Intestinal obstruction [Recovering/Resolving]
  - Large intestinal stenosis [Recovering/Resolving]
  - Vomiting [Recovered/Resolved]
  - Gait inability [Recovering/Resolving]
  - Infection [Recovering/Resolving]
  - Crohn^s disease [Recovered/Resolved]

NARRATIVE: CASE EVENT DATE: 20210220
